FAERS Safety Report 10307788 (Version 1)
Quarter: 2014Q3

REPORT INFORMATION
  Report Type: Spontaneous
  Country: US (occurrence: None)
  Receive Date: 20140714
  Receipt Date: 20140714
  Transmission Date: 20150326
  Serious: Yes (Hospitalization)
  Sender: FDA-Public Use
  Company Number: None

PATIENT
  Age: 20 Year
  Sex: Male

DRUGS (1)
  1. LEVETIRACETAM. [Suspect]
     Active Substance: LEVETIRACETAM
     Indication: CONVULSION
     Dates: start: 20110325, end: 20130315

REACTIONS (9)
  - Somnolence [None]
  - Splenomegaly [None]
  - Blood alkaline phosphatase increased [None]
  - Drug-induced liver injury [None]
  - Abdominal pain [None]
  - Alanine aminotransferase increased [None]
  - Cholestasis [None]
  - Blood bilirubin increased [None]
  - Aspartate aminotransferase increased [None]

NARRATIVE: CASE EVENT DATE: 20120906
